FAERS Safety Report 6671584-8 (Version None)
Quarter: 2010Q2

REPORT INFORMATION
  Report Type: 
  Country: None (occurrence: None)
  Receive Date: 20100407
  Receipt Date: 20100329
  Transmission Date: 20101027
  Serious: Yes (Hospitalization)
  Sender: FDA-Public Use
  Company Number: US-B.I. PHARMACEUTICALS,INC./RIDGEFIELD-2010-BP-02209BP

PATIENT
  Sex: Female
  Weight: 48.53 kg

DRUGS (11)
  1. MIRAPEX [Suspect]
     Indication: PARKINSON'S DISEASE
     Route: 048
     Dates: start: 20020318, end: 20080601
  2. MIRALAX [Concomitant]
     Indication: CONSTIPATION
  3. SEROQUEL [Concomitant]
     Indication: ANXIETY
     Dosage: 150 MG
  4. CLONAZEPAM [Concomitant]
     Indication: RAPID EYE MOVEMENTS SLEEP ABNORMAL
     Dosage: 0.75 MG
  5. CELEXA [Concomitant]
     Dosage: 20 MG
  6. GABAPENTIN [Concomitant]
     Dosage: 600 MG
  7. SINEMET/COMTAN [Concomitant]
  8. SINEMET/COMTAN [Concomitant]
  9. CITALOPRAM HYDROBROMIDE [Concomitant]
     Indication: DEPRESSION
     Route: 048
  10. STALEVO 100 [Concomitant]
     Indication: PARKINSON'S DISEASE
     Route: 048
  11. NEXIUM [Concomitant]
     Indication: GASTROOESOPHAGEAL REFLUX DISEASE
     Dosage: 40 MG
     Route: 048

REACTIONS (13)
  - ANXIETY [None]
  - ASTHENIA [None]
  - CHOLELITHIASIS [None]
  - EMOTIONAL DISTRESS [None]
  - ILEUS [None]
  - MAJOR DEPRESSION [None]
  - MENTAL IMPAIRMENT [None]
  - OBSESSIVE-COMPULSIVE DISORDER [None]
  - PAIN [None]
  - PANIC ATTACK [None]
  - PATHOLOGICAL GAMBLING [None]
  - PLEURITIC PAIN [None]
  - POST PROCEDURAL BILE LEAK [None]
